FAERS Safety Report 5359455-0 (Version None)
Quarter: 2007Q2

REPORT INFORMATION
  Report Type: 
  Country: None (occurrence: None)
  Receive Date: 20070615
  Receipt Date: 20070608
  Transmission Date: 20071010
  Serious: Yes (Hospitalization, Other)
  Sender: FDA-Public Use
  Company Number: US-ALLERGAN-0705116US

PATIENT
  Sex: Male
  Weight: 20 kg

DRUGS (6)
  1. BOTOX [Suspect]
     Indication: MUSCLE SPASTICITY
     Dosage: 600 UNITS, SINGLE
     Route: 030
     Dates: start: 20070423, end: 20070423
  2. BOTOX [Suspect]
  3. BOTOX [Suspect]
  4. SINEMET [Concomitant]
     Indication: MUSCLE SPASTICITY
  5. DEPAKOTE [Concomitant]
     Indication: MUSCLE SPASTICITY
  6. LEUCOVORIN CALCIUM [Concomitant]
     Indication: MUSCLE SPASTICITY

REACTIONS (6)
  - ASTHENIA [None]
  - BOTULISM [None]
  - DYSPHAGIA [None]
  - EYELID PTOSIS [None]
  - LETHARGY [None]
  - PNEUMONIA ASPIRATION [None]
